FAERS Safety Report 8375972-3 (Version None)
Quarter: 2012Q2

REPORT INFORMATION
  Report Type: 
  Country: None (occurrence: None)
  Receive Date: 20120522
  Receipt Date: 20120516
  Transmission Date: 20120825
  Serious: Yes (Hospitalization, Other)
  Sender: FDA-Public Use
  Company Number: DE-AMGEN-DEUSP2012026889

PATIENT
  Sex: Female

DRUGS (5)
  1. CALCIUM [Concomitant]
  2. CINACALCET HYDROCHLORIDE [Suspect]
     Dosage: 60 MG, QD
     Dates: start: 20110616
  3. DEKRISTOL [Concomitant]
     Dosage: UNK UNK, QWK
     Dates: start: 20110101
  4. CINACALCET HYDROCHLORIDE [Suspect]
     Indication: HYPERPARATHYROIDISM SECONDARY
     Dosage: 30 MG, UNK
     Dates: start: 20101111
  5. BONDIOL [Concomitant]
     Dosage: UNK
     Dates: start: 20110101

REACTIONS (2)
  - PARATHYROIDECTOMY [None]
  - HYPERCALCAEMIA [None]
